FAERS Safety Report 6809500-8 (Version None)
Quarter: 2010Q2

REPORT INFORMATION
  Report Type: 
  Country: None (occurrence: None)
  Receive Date: 20100630
  Receipt Date: 20100623
  Transmission Date: 20101027
  Serious: Yes (Death)
  Sender: FDA-Public Use
  Company Number: LT-BRISTOL-MYERS SQUIBB COMPANY-15166580

PATIENT
  Age: 67 Year
  Sex: Male
  Weight: 86 kg

DRUGS (3)
  1. CETUXIMAB [Suspect]
     Indication: NON-SMALL CELL LUNG CANCER
     Dosage: RECENT INF ON 21JAN2010. CETUXIMAB 2MG/ML
     Route: 042
     Dates: start: 20091125, end: 20100121
  2. CARBOPLATIN [Suspect]
     Indication: NON-SMALL CELL LUNG CANCER
     Dosage: RECENT INF ON 14JAN2010
     Route: 042
     Dates: start: 20091125, end: 20100114
  3. GEMCITABINE HCL [Suspect]
     Indication: NON-SMALL CELL LUNG CANCER
     Dosage: RECENT INF ON 14JAN2010
     Route: 042
     Dates: start: 20091125, end: 20100114

REACTIONS (1)
  - TUMOUR HAEMORRHAGE [None]
